FAERS Safety Report 4736682-4 (Version None)
Quarter: 2005Q3

REPORT INFORMATION
  Report Type: 
  Country: None (occurrence: None)
  Receive Date: 20050804
  Receipt Date: 20050727
  Transmission Date: 20060218
  Serious: Yes (Death, Hospitalization)
  Sender: FDA-Public Use
  Company Number: 163-2078505070416

PATIENT
  Age: 68 Year
  Sex: Male
  Weight: 90 kg

DRUGS (14)
  1. THALOMID [Suspect]
     Indication: PROSTATE CANCER
     Dosage: 100 MG, QD, ORAL
     Route: 048
     Dates: start: 20050701, end: 20050724
  2. IMATINIB (IMATINIB) [Suspect]
     Indication: PROSTATE CANCER
     Dosage: 200 MG, QD, ORAL
     Route: 048
     Dates: start: 20050701, end: 20050724
  3. ALBUTEROL [Concomitant]
  4. CALCIUM WITH VITAMIN D (CALCIUM WITH VITAMIN D_ [Concomitant]
  5. CALCIUM WITH VITAMIN D (CALCIUM WITH VITAMIN D) [Concomitant]
  6. DOCUSATE SODIUM (DOCUSATE SODIUM) [Concomitant]
  7. HYDROCHLOROTHIAZIDE [Concomitant]
  8. MORPHINE SO4 (MORPHINE SULFATE) [Concomitant]
  9. NAPROXEN [Concomitant]
  10. OXYCODONE (OXYCODONE) [Concomitant]
  11. PREDNISONE [Concomitant]
  12. RANITIDINE HCL (RANITIDINE HYDROCHLORIDE) [Concomitant]
  13. SENNOSIDES (SENNOSIDE A+B) [Concomitant]
  14. ENSURE (ENSURE) [Concomitant]

REACTIONS (23)
  - BAND NEUTROPHIL PERCENTAGE INCREASED [None]
  - BLOOD ALBUMIN DECREASED [None]
  - BLOOD ALKALINE PHOSPHATASE INCREASED [None]
  - BLOOD CALCIUM INCREASED [None]
  - BLOOD CHLORIDE DECREASED [None]
  - BLOOD GLUCOSE INCREASED [None]
  - BLOOD IRON DECREASED [None]
  - BLOOD SODIUM DECREASED [None]
  - CARDIO-RESPIRATORY ARREST [None]
  - HAEMATOCRIT DECREASED [None]
  - HAEMOGLOBIN DECREASED [None]
  - ILEUS PARALYTIC [None]
  - INFECTION [None]
  - IRON BINDING CAPACITY TOTAL DECREASED [None]
  - MONOCYTE COUNT INCREASED [None]
  - NEPHROLITHIASIS [None]
  - NEUTROPHIL COUNT DECREASED [None]
  - PLATELET COUNT DECREASED [None]
  - PROTHROMBIN TIME PROLONGED [None]
  - RED BLOOD CELL COUNT DECREASED [None]
  - RED CELL DISTRIBUTION WIDTH INCREASED [None]
  - SUDDEN DEATH [None]
  - WHITE BLOOD CELL COUNT DECREASED [None]
